FAERS Safety Report 7967462 (Version 4)
Quarter: 2015Q1

REPORT INFORMATION
  Report Type: Spontaneous
  Country: US (occurrence: US)
  Receive Date: 20110531
  Receipt Date: 20150303
  Transmission Date: 20150721
  Serious: Yes (Hospitalization, Other)
  Sender: FDA-Public Use
  Company Number: US-ASTRAZENECA-2011SE31436

PATIENT
  Age: 79 Year
  Sex: Female
  Weight: 77.1 kg

DRUGS (34)
  1. CRESTOR [Suspect]
     Active Substance: ROSUVASTATIN CALCIUM
     Indication: BLOOD CHOLESTEROL ABNORMAL
     Route: 048
  2. AVANDIA [Concomitant]
     Active Substance: ROSIGLITAZONE MALEATE
  3. COREG [Concomitant]
     Active Substance: CARVEDILOL
     Indication: CARDIAC DISORDER
  4. VYTORIN [Concomitant]
     Active Substance: EZETIMIBE\SIMVASTATIN
     Dosage: 10/40 DAILY
  5. IMIPRAMINE [Concomitant]
     Active Substance: IMIPRAMINE
     Indication: NEUROPATHY PERIPHERAL
     Route: 048
  6. VITAMIN D [Concomitant]
     Active Substance: CHOLECALCIFEROL
     Indication: VITAMIN SUPPLEMENTATION
     Route: 048
  7. IMDUR [Concomitant]
     Active Substance: ISOSORBIDE MONONITRATE
     Indication: CARDIAC DISORDER
  8. NEXIUM [Suspect]
     Active Substance: ESOMEPRAZOLE MAGNESIUM
     Indication: GASTRIC DISORDER
     Route: 048
     Dates: start: 201412, end: 201501
  9. DIOVAN [Concomitant]
     Active Substance: VALSARTAN
  10. FISH OIL [Concomitant]
     Active Substance: FISH OIL
     Indication: NUTRITIONAL SUPPLEMENTATION
     Route: 048
  11. FISH OIL [Concomitant]
     Active Substance: FISH OIL
     Indication: NUTRITIONAL SUPPLEMENTATION
     Route: 048
  12. TRADJENTA [Concomitant]
     Active Substance: LINAGLIPTIN
     Indication: DIABETES MELLITUS
     Route: 048
  13. CARVEDOL [Concomitant]
     Indication: CARDIAC DISORDER
     Route: 048
  14. LORAZEPAM. [Concomitant]
     Active Substance: LORAZEPAM
     Route: 048
  15. HYDROCODONE [Concomitant]
     Active Substance: HYDROCODONE
     Indication: PAIN
     Dosage: 5-500 PRN
     Route: 048
  16. NEXIUM [Suspect]
     Active Substance: ESOMEPRAZOLE MAGNESIUM
     Indication: GASTRIC DISORDER
     Route: 048
     Dates: start: 2005, end: 201412
  17. LISINOPRIL. [Suspect]
     Active Substance: LISINOPRIL
     Indication: BLOOD PRESSURE ABNORMAL
     Route: 048
  18. METFORMIN [Concomitant]
     Active Substance: METFORMIN HYDROCHLORIDE
     Indication: DIABETES MELLITUS
  19. LASIX [Concomitant]
     Active Substance: FUROSEMIDE
     Indication: BLOOD PRESSURE ABNORMAL
     Route: 048
  20. LASIX [Concomitant]
     Active Substance: FUROSEMIDE
     Indication: CARDIAC DISORDER
     Route: 048
  21. LORAZEPAM. [Concomitant]
     Active Substance: LORAZEPAM
  22. ISOSORBIDE [Concomitant]
     Active Substance: ISOSORBIDE
     Indication: CARDIAC DISORDER
     Route: 048
  23. LASIX [Concomitant]
     Active Substance: FUROSEMIDE
     Indication: BLOOD PRESSURE ABNORMAL
     Route: 048
  24. LASIX [Concomitant]
     Active Substance: FUROSEMIDE
     Indication: CARDIAC DISORDER
     Route: 048
  25. ACTOS [Concomitant]
     Active Substance: PIOGLITAZONE HYDROCHLORIDE
     Route: 048
  26. IMIPRAMINE [Concomitant]
     Active Substance: IMIPRAMINE
     Indication: NEUROPATHY PERIPHERAL
  27. TRICOR [Concomitant]
     Active Substance: FENOFIBRATE
  28. KAYEXALATE [Concomitant]
     Active Substance: SODIUM POLYSTYRENE SULFONATE
     Route: 048
  29. BABY ASPIRIN [Concomitant]
     Active Substance: ASPIRIN
     Route: 048
  30. NEXIUM [Suspect]
     Active Substance: ESOMEPRAZOLE MAGNESIUM
     Indication: GASTRIC DISORDER
     Route: 048
     Dates: start: 2007
  31. METFORMIN [Concomitant]
     Active Substance: METFORMIN HYDROCHLORIDE
     Indication: DIABETES MELLITUS
  32. PLAVIX [Concomitant]
     Active Substance: CLOPIDOGREL BISULFATE
  33. NEXIUM [Suspect]
     Active Substance: ESOMEPRAZOLE MAGNESIUM
     Indication: GASTRIC DISORDER
     Route: 048
     Dates: start: 2003
  34. DARVOCET-N 100 [Concomitant]
     Active Substance: ACETAMINOPHEN\PROPOXYPHENE NAPSYLATE
     Dosage: AS REQUIRED

REACTIONS (36)
  - Ankle fracture [Recovered/Resolved]
  - Musculoskeletal chest pain [Unknown]
  - Osteoarthritis [Unknown]
  - Bronchitis [Unknown]
  - Abdominal discomfort [Unknown]
  - Asthenia [Unknown]
  - Nausea [Unknown]
  - Malaise [Unknown]
  - Myalgia [Unknown]
  - Coronary artery disease [Unknown]
  - Arthritis [Unknown]
  - Post procedural complication [Unknown]
  - Chest pain [Unknown]
  - Hypercholesterolaemia [Unknown]
  - Cough [Unknown]
  - Angina pectoris [Unknown]
  - Drug dose omission [Unknown]
  - Syncope [Unknown]
  - Type 2 diabetes mellitus [Unknown]
  - Dyspnoea [Unknown]
  - Bone pain [Unknown]
  - Cardiac disorder [Unknown]
  - Femur fracture [Unknown]
  - Joint injury [Unknown]
  - Gastrooesophageal reflux disease [Unknown]
  - Dyslipidaemia [Unknown]
  - Hypertension [Unknown]
  - Sinus node dysfunction [Unknown]
  - Lower limb fracture [Recovered/Resolved]
  - Fall [Unknown]
  - Stress [Unknown]
  - Renal impairment [Unknown]
  - Cardiac failure congestive [Unknown]
  - Hyperkalaemia [Unknown]
  - Memory impairment [Unknown]
  - Product use issue [Unknown]

NARRATIVE: CASE EVENT DATE: 2003
